FAERS Safety Report 4416811-2 (Version None)
Quarter: 2004Q3

REPORT INFORMATION
  Report Type: 
  Country: None (occurrence: None)
  Receive Date: 20040802
  Receipt Date: 20040726
  Transmission Date: 20050211
  Serious: Yes (Death)
  Sender: FDA-Public Use
  Company Number: 2004UW15834

PATIENT
  Sex: Male

DRUGS (2)
  1. IRESSA [Suspect]
     Dosage: 250 MG PO
     Route: 048
  2. LISINOPRIL [Concomitant]

REACTIONS (1)
  - MEDICATION ERROR [None]
